FAERS Safety Report 13454741 (Version 1)
Quarter: 2017Q2

REPORT INFORMATION
  Report Type: Spontaneous
  Country: US (occurrence: US)
  Receive Date: 20170418
  Receipt Date: 20170418
  Transmission Date: 20170830
  Serious: No
  Sender: FDA-Public Use
  Company Number: US-ALLERGAN-1679455US

PATIENT
  Sex: Female

DRUGS (1)
  1. LATISSE [Suspect]
     Active Substance: BIMATOPROST
     Indication: OCULAR HYPERAEMIA
     Dosage: 1 GTT, QHS
     Route: 061
     Dates: start: 20161201, end: 20161204

REACTIONS (2)
  - Off label use [Unknown]
  - Ocular hyperaemia [Recovered/Resolved]
